FAERS Safety Report 9096759 (Version 4)
Quarter: 2013Q2

REPORT INFORMATION
  Report Type: Spontaneous
  Country: GB (occurrence: None)
  Receive Date: 20130124
  Receipt Date: 20130604
  Transmission Date: 20140414
  Serious: Yes (Other)
  Sender: FDA-Public Use
  Company Number: AUR-APL-2013-00492

PATIENT
  Age: 38 Year
  Sex: Male

DRUGS (4)
  1. RIBAVIRIN [Suspect]
     Indication: HEPATITIS C
     Route: 048
     Dates: start: 20120807
  2. PEGINTERFERON ALFA-2B (PEGINTERFERON ALFA-2B) [Suspect]
     Indication: HEPATITIS C
     Route: 058
     Dates: start: 201206
  3. TELAPREVIR [Suspect]
     Indication: HEPATITIS C
     Dosage: 2250 MG (750 MG, 3 IN 1 D), ORAL
     Route: 048
     Dates: start: 20120807
  4. CO-TRIMOXAZOLE (CO-TRIMOXAZOLE) [Concomitant]

REACTIONS (11)
  - Decreased appetite [None]
  - Fatigue [None]
  - Rash [None]
  - Nausea [None]
  - Diarrhoea [None]
  - Pruritus [None]
  - Pruritus [None]
  - Insomnia [None]
  - Sinus headache [None]
  - Haemorrhoids [None]
  - Rash [None]
